FAERS Safety Report 6607398-4 (Version None)
Quarter: 2010Q1

REPORT INFORMATION
  Report Type: 
  Country: None (occurrence: None)
  Receive Date: 20100223
  Receipt Date: 20100215
  Transmission Date: 20100710
  Serious: Yes (Hospitalization, Other)
  Sender: FDA-Public Use
  Company Number: JHP201000053

PATIENT
  Age: 18 Year
  Sex: Male

DRUGS (5)
  1. KETALAR [Suspect]
     Indication: DRUG ABUSE
     Dosage: INSUFFLATION
  2. BROMO-DRAGONFLY [Suspect]
     Indication: DRUG ABUSE
     Dosage: ORAL
     Route: 048
  3. CANNABIS (CANNABIS SATIVA) [Suspect]
     Indication: DRUG ABUSE
     Dosage: INSUFFLATION
  4. SALBUTAMOL (SALBUTAMOL SULFATE) [Concomitant]
  5. FLUTICASONE PROPIONATE [Concomitant]

REACTIONS (16)
  - AGITATION [None]
  - APNOEA [None]
  - BLOOD CREATININE INCREASED [None]
  - BLOOD GLUCOSE INCREASED [None]
  - BLOOD POTASSIUM INCREASED [None]
  - BLOOD PRESSURE INCREASED [None]
  - DRUG INTERACTION [None]
  - GRAND MAL CONVULSION [None]
  - HALLUCINATION [None]
  - LOSS OF CONSCIOUSNESS [None]
  - METABOLIC ACIDOSIS [None]
  - MYDRIASIS [None]
  - PNEUMONIA ASPIRATION [None]
  - PUPILLARY REFLEX IMPAIRED [None]
  - RESPIRATORY ACIDOSIS [None]
  - SINUS TACHYCARDIA [None]
